FAERS Safety Report 8446286 (Version 3)
Quarter: 2012Q4

REPORT INFORMATION
  Report Type: 
  Country: AU (occurrence: AU)
  Receive Date: 20120307
  Receipt Date: 20120912
  Transmission Date: 20130627
  Serious: Yes (Other)
  Sender: FDA-Public Use
  Company Number: PHHY2012AU019292

PATIENT
  Sex: Female

DRUGS (6)
  1. STALEVO [Suspect]
     Indication: PARKINSON^S DISEASE
     Dosage: 200 /150/37.5 mg tablet, 6 times daily
     Dates: start: 2005
  2. SIFROL [Concomitant]
     Indication: PARKINSON^S DISEASE
  3. MOVICOL [Concomitant]
     Indication: GASTROINTESTINAL MOTILITY DISORDER
  4. MOTILIUM [Concomitant]
     Indication: PARKINSON^S DISEASE
  5. MIRTAZAPINE [Concomitant]
     Indication: DEPRESSION
  6. SINEMET [Concomitant]
     Indication: PARKINSON^S DISEASE
     Dosage: 100/25

REACTIONS (2)
  - Medication residue [Recovered/Resolved]
  - Parkinson^s disease [Recovered/Resolved]
